FAERS Safety Report 7241972-X (Version None)
Quarter: 2011Q1

REPORT INFORMATION
  Report Type: 
  Country: None (occurrence: None)
  Receive Date: 20110124
  Receipt Date: 20110114
  Transmission Date: 20110831
  Serious: Yes (Hospitalization)
  Sender: FDA-Public Use
  Company Number: US-ASTRAZENECA-2011SE02564

PATIENT
  Age: 45 Year
  Sex: Male

DRUGS (5)
  1. METOPROLOL [Concomitant]
     Indication: HYPERTENSION
     Route: 048
  2. SEROQUEL [Suspect]
     Indication: SLEEP DISORDER
     Route: 048
  3. SEROQUEL [Suspect]
     Indication: DEPRESSION
     Route: 048
  4. HYDROCHLOROTHIAZIDE [Concomitant]
     Indication: HYPERTENSION
     Route: 048
  5. XANAX [Concomitant]
     Route: 048

REACTIONS (1)
  - COLORECTAL CANCER [None]
